FAERS Safety Report 7058402-3 (Version None)
Quarter: 2010Q4

REPORT INFORMATION
  Report Type: 
  Country: None (occurrence: None)
  Receive Date: 20101021
  Receipt Date: 20101021
  Transmission Date: 20110411
  Serious: No
  Sender: FDA-Public Use
  Company Number: None

PATIENT
  Age: 36 Year
  Sex: Female
  Weight: 106.5953 kg

DRUGS (2)
  1. LEVAQUIN [Suspect]
     Indication: PNEUMONIA
     Dosage: 750 MG Q24 IV
     Route: 042
     Dates: start: 20100825, end: 20100826
  2. DIFLUCAN [Concomitant]

REACTIONS (2)
  - RASH GENERALISED [None]
  - TINNITUS [None]
